FAERS Safety Report 23062322 (Version 1)
Quarter: 2023Q4

REPORT INFORMATION
  Report Type: Spontaneous
  Country: US (occurrence: None)
  Receive Date: 20231013
  Receipt Date: 20231013
  Transmission Date: 20240110
  Serious: No
  Sender: FDA-Public Use
  Company Number: 2023A226435

PATIENT

DRUGS (2)
  1. FARXIGA [Suspect]
     Active Substance: DAPAGLIFLOZIN PROPANEDIOL
     Route: 048
  2. OZEMPIC [Concomitant]
     Active Substance: SEMAGLUTIDE

REACTIONS (7)
  - Dry mouth [Unknown]
  - Abdominal pain upper [Unknown]
  - Pollakiuria [Unknown]
  - Constipation [Unknown]
  - Erythema [Unknown]
  - Heart rate increased [Unknown]
  - Scoliosis [Unknown]
